FAERS Safety Report 5778684-5 (Version None)
Quarter: 2008Q2

REPORT INFORMATION
  Report Type: 
  Country: None (occurrence: None)
  Receive Date: 20080619
  Receipt Date: 20080618
  Transmission Date: 20081010
  Serious: Yes (Hospitalization)
  Sender: FDA-Public Use
  Company Number: B0525374A

PATIENT
  Age: 66 Year
  Sex: Male

DRUGS (2)
  1. GW572016 [Suspect]
     Indication: GASTRIC CANCER
     Route: 048
     Dates: start: 20080605
  2. PACLITAXEL [Suspect]
     Indication: GASTRIC CANCER
     Route: 042
     Dates: start: 20080604

REACTIONS (2)
  - DIARRHOEA [None]
  - ENTEROCOLITIS INFECTIOUS [None]
